FAERS Safety Report 21051175 (Version 1)
Quarter: 2022Q3

REPORT INFORMATION
  Report Type: Report from Study
  Country: US (occurrence: US)
  Receive Date: 20220707
  Receipt Date: 20220707
  Transmission Date: 20221027
  Serious: No
  Sender: FDA-Public Use
  Company Number: US-CELGENE-USA-20170504927

PATIENT
  Age: 22 Year
  Sex: Female

DRUGS (6)
  1. OZANIMOD [Suspect]
     Active Substance: OZANIMOD
     Indication: Product used for unknown indication
     Route: 048
     Dates: start: 20130131, end: 20130203
  2. OZANIMOD [Suspect]
     Active Substance: OZANIMOD
     Route: 048
     Dates: start: 20130204, end: 20130206
  3. OZANIMOD [Suspect]
     Active Substance: OZANIMOD
     Route: 048
     Dates: start: 20130207, end: 20130209
  4. OZANIMOD [Suspect]
     Active Substance: OZANIMOD
     Route: 048
     Dates: start: 20130210, end: 20130213
  5. MOXIFLOXACIN [Suspect]
     Active Substance: MOXIFLOXACIN
     Indication: Product used for unknown indication
     Dosage: FREQUENCY TEXT: NOT PROVIDED?400 MILLIGRAM
     Route: 048
     Dates: start: 20130201, end: 20130201
  6. HYDROCORTISONE [Concomitant]
     Active Substance: HYDROCORTISONE
     Indication: Skin irritation
     Dosage: FREQUENCY TEXT: NOT PROVIDED?1 PERCENT
     Route: 065
     Dates: start: 20130203, end: 20130215

REACTIONS (1)
  - Maternal exposure during pregnancy [Unknown]

NARRATIVE: CASE EVENT DATE: 20130304
